FAERS Safety Report 22089531 (Version 1)
Quarter: 2023Q1

REPORT INFORMATION
  Report Type: Spontaneous
  Country: US (occurrence: None)
  Receive Date: 20230312
  Receipt Date: 20230312
  Transmission Date: 20230418
  Serious: No
  Sender: FDA-Public Use
  Company Number: None

PATIENT
  Age: 33 Year
  Sex: Female
  Weight: 65.25 kg

DRUGS (1)
  1. METHYLPHENIDATE [Suspect]
     Active Substance: METHYLPHENIDATE
     Indication: Attention deficit hyperactivity disorder
     Dosage: OTHER QUANTITY : 30 TABLET(S);?
     Route: 048
     Dates: start: 20230301

REACTIONS (4)
  - Hypoaesthesia [None]
  - Hypoaesthesia [None]
  - Migraine [None]
  - Poor quality product administered [None]

NARRATIVE: CASE EVENT DATE: 20230311
